FAERS Safety Report 16672052 (Version 1)
Quarter: 2019Q3

REPORT INFORMATION
  Report Type: Spontaneous
  Country: DE (occurrence: DE)
  Receive Date: 20190806
  Receipt Date: 20190806
  Transmission Date: 20191004
  Serious: Yes (Hospitalization)
  Sender: FDA-Public Use
  Company Number: DE-JNJFOC-20190713750

PATIENT
  Age: 74 Year
  Sex: Male
  Weight: 79 kg

DRUGS (19)
  1. XIMOVAN [Concomitant]
     Active Substance: ZOPICLONE
     Dosage: 7.5 MG, 0-0-0-1, TABLETS
     Route: 048
  2. LOVASTATIN. [Concomitant]
     Active Substance: LOVASTATIN
     Dosage: 20 MG, 0-0-1/2, TABLETS
     Route: 048
  3. VINCRISTINE [Suspect]
     Active Substance: VINCRISTINE
     Indication: PRODUCT USED FOR UNKNOWN INDICATION
     Dosage: 2 MG, SOLUTION FOR INJECTION/INFUSION
     Route: 042
  4. FUROSEMIDE. [Concomitant]
     Active Substance: FUROSEMIDE
     Dosage: 40 MG; 1-0-0, TABLETS
     Route: 048
  5. TILIDINE/NALOXONE [Concomitant]
     Active Substance: NALOXONE HYDROCHLORIDE\TILIDINE HYDROCHLORIDE
     Dosage: 50|4 MG B.B.; EXTENDED-RELEASE TABLETS
     Route: 048
  6. COTRIM FORTE [Concomitant]
     Active Substance: SULFAMETHOXAZOLE\TRIMETHOPRIM
     Dosage: 960 MG, 1-0-1 ON MON, WED, FRI, TABLETS
     Route: 048
  7. RITUXIMAB. [Suspect]
     Active Substance: RITUXIMAB
     Indication: PRODUCT USED FOR UNKNOWN INDICATION
     Dosage: 375 MG/M2 SOLUTION FOR INJECTION/INFUSION
     Route: 042
  8. PANTOPRAZOL [Concomitant]
     Active Substance: PANTOPRAZOLE SODIUM
     Dosage: 20 MG, 1-0-0, TABLETS
     Route: 048
  9. ENZYM-LEFAX [Concomitant]
     Dosage: 100 MG, 0-0-1, TABLETS
     Route: 048
  10. LONQUEX [Concomitant]
     Active Substance: LIPEGFILGRASTIM
     Dosage: ON 10 MARCH 2017; SOLUTION FOR INJECTION/INFUSION
     Route: 058
  11. DIMETINDENE [Concomitant]
     Active Substance: DIMETHINDENE
     Dosage: 4 MG ON DAY 1 OF CHEMOTHERAPY; SOLUTION FOR INJECTION/INFUSION
     Route: 042
  12. MCP [Concomitant]
     Active Substance: METOCLOPRAMIDE HYDROCHLORIDE
     Dosage: 10 MG IBS AT 2X/DAY, TABLETS
     Route: 048
  13. CAELYX [Suspect]
     Active Substance: DOXORUBICIN HYDROCHLORIDE
     Indication: PRODUCT USED FOR UNKNOWN INDICATION
     Dosage: 37.5 MG/M2; SOLUTION FOR INJECTION/SOLUTION
     Route: 042
  14. CYCLOPHOSPHAMID [Suspect]
     Active Substance: CYCLOPHOSPHAMIDE
     Indication: PRODUCT USED FOR UNKNOWN INDICATION
     Dosage: 750 MG/M2 SOLUTION FOR INJECTION/INFUSION
     Route: 042
  15. NEULASTA [Concomitant]
     Active Substance: PEGFILGRASTIM
     Dosage: SOLUTION FOR INJECTION/INFUSION
     Route: 058
  16. ACICLOVIR [Concomitant]
     Active Substance: ACYCLOVIR
     Dosage: 400 MG, 1-1-1-1-1, TABLETS
     Route: 048
  17. PREDNISON [Concomitant]
     Active Substance: PREDNISONE
     Dosage: 100 MG ON DAYS 1-5 OF CHEMOTHERAPY; TABLETS
     Route: 048
  18. PARACETAMOL [Concomitant]
     Active Substance: ACETAMINOPHEN
     Dosage: 1000 MG ON DAY 1 OF CHEMOTHERAPY; TABLETS
     Route: 048
  19. ALLOPURINOL. [Concomitant]
     Active Substance: ALLOPURINOL
     Dosage: 100 MG, 1-0-0, TABLETS
     Route: 048

REACTIONS (5)
  - Cough [Unknown]
  - Vomiting [Unknown]
  - Dizziness [Unknown]
  - Nausea [Unknown]
  - Dry mouth [Unknown]
